FAERS Safety Report 24062913 (Version 1)
Quarter: 2024Q3

REPORT INFORMATION
  Report Type: Report from Study
  Country: CA (occurrence: None)
  Receive Date: 20240709
  Receipt Date: 20240709
  Transmission Date: 20241017
  Serious: Yes (Other)
  Sender: ASTRAZENECA
  Company Number: 2024A129347

PATIENT
  Sex: Male

DRUGS (1)
  1. CALQUENCE [Suspect]
     Active Substance: ACALABRUTINIB
     Indication: Chronic lymphocytic leukaemia
     Route: 048
     Dates: start: 20200731

REACTIONS (7)
  - Anxiety [Unknown]
  - Peripheral swelling [Recovering/Resolving]
  - Tinnitus [Unknown]
  - Confusional state [Unknown]
  - Asthenia [Unknown]
  - Sleep disorder [Unknown]
  - Depression [Unknown]
